FAERS Safety Report 9790221 (Version 1)
Quarter: 2013Q4

REPORT INFORMATION
  Report Type: Spontaneous
  Country: GB (occurrence: GB)
  Receive Date: 20131231
  Receipt Date: 20131231
  Transmission Date: 20140711
  Serious: Yes (Other)
  Sender: FDA-Public Use
  Company Number: GB-JNJFOC-20131214085

PATIENT
  Age: 55 Year
  Sex: Male
  Weight: 114 kg

DRUGS (10)
  1. STELARA [Suspect]
     Indication: PRODUCT USED FOR UNKNOWN INDICATION
     Route: 058
  2. EUMOVATE [Concomitant]
     Route: 065
     Dates: start: 20130905, end: 20131003
  3. EUMOVATE [Concomitant]
     Route: 065
     Dates: start: 20131031, end: 20131128
  4. CO-CODAMOL [Concomitant]
     Route: 065
     Dates: start: 20130103, end: 20130110
  5. FINASTERIDE [Concomitant]
     Route: 065
     Dates: start: 20131031, end: 20131101
  6. FLUTICASONE [Concomitant]
     Route: 065
     Dates: start: 20131031, end: 20131128
  7. FLUTICASONE [Concomitant]
     Route: 065
     Dates: start: 20130905, end: 20131003
  8. SALBUTAMOL [Concomitant]
     Route: 065
     Dates: start: 20131031, end: 20131101
  9. SERTRALINE [Concomitant]
     Route: 065
     Dates: start: 20130729, end: 20131202
  10. HYDROMOL [Concomitant]
     Route: 065

REACTIONS (1)
  - Chest pain [Unknown]
